FAERS Safety Report 4553370-8 (Version None)
Quarter: 2005Q1

REPORT INFORMATION
  Report Type: 
  Country: None (occurrence: None)
  Receive Date: 20050112
  Receipt Date: 20050105
  Transmission Date: 20050727
  Serious: Yes (Other)
  Sender: FDA-Public Use
  Company Number: FR_041205494

PATIENT
  Age: 52 Year
  Sex: Male
  Weight: 57 kg

DRUGS (4)
  1. GEMZAR [Suspect]
     Indication: ADENOCARCINOMA PANCREAS
     Dosage: 1000 MG/M2/1 OTHER
     Route: 042
     Dates: start: 20030519, end: 20030728
  2. OXALIPLATIN [Suspect]
     Indication: ADENOCARCINOMA PANCREAS
     Dosage: 100 MG/M2/1 OTHER
     Dates: start: 20030520, end: 20030729
  3. GEMZAR [Suspect]
     Indication: ADENOCARCINOMA PANCREAS
     Dosage: 100 MG/M2/1 OTHER
     Dates: start: 20030826, end: 20030930
  4. RADIOTHERAPY [Suspect]
     Indication: ADENOCARCINOMA PANCREAS
     Dosage: 2 GRAY/5 OTHER
     Dates: start: 20030825, end: 20031009

REACTIONS (2)
  - DYSAESTHESIA [None]
  - NEUROPATHY [None]
